FAERS Safety Report 4559646-2 (Version None)
Quarter: 2005Q1

REPORT INFORMATION
  Report Type: 
  Country: None (occurrence: None)
  Receive Date: 20050113
  Receipt Date: 20040927
  Transmission Date: 20050727
  Serious: Yes (Other)
  Sender: FDA-Public Use
  Company Number: 378183

PATIENT
  Age: 60 Year
  Sex: Male
  Weight: 79.8 kg

DRUGS (5)
  1. FUZEON [Suspect]
     Indication: HIV INFECTION
     Dosage: 90 MG  2 PER DAY
     Dates: start: 20040404
  2. TRICOR [Concomitant]
  3. GLYBURIDE [Concomitant]
  4. ZIAGEN [Concomitant]
  5. REYATAZ [Concomitant]

REACTIONS (12)
  - BLOOD CHOLESTEROL INCREASED [None]
  - BLOOD GLUCOSE ABNORMAL [None]
  - CLUMSINESS [None]
  - DEPRESSION [None]
  - FATIGUE [None]
  - HYPERGLYCAEMIA [None]
  - INJECTION SITE INFLAMMATION [None]
  - INJECTION SITE PAIN [None]
  - MOBILITY DECREASED [None]
  - NERVOUSNESS [None]
  - PAIN IN EXTREMITY [None]
  - VISION BLURRED [None]
